FAERS Safety Report 9689913 (Version 2)
Quarter: 2016Q2

REPORT INFORMATION
  Report Type: Spontaneous
  Country: US (occurrence: US)
  Receive Date: 20131115
  Receipt Date: 20160429
  Transmission Date: 20160815
  Serious: No
  Sender: FDA-Public Use
  Company Number: US-PFIZER INC-2013324243

PATIENT
  Sex: Female

DRUGS (1)
  1. RAPAMUNE [Suspect]
     Active Substance: SIROLIMUS
     Dosage: UNK

REACTIONS (3)
  - Cancer in remission [Unknown]
  - Product use issue [Unknown]
  - Therapeutic response unexpected [Unknown]
